FAERS Safety Report 16338450 (Version 1)
Quarter: 2019Q2

REPORT INFORMATION
  Report Type: Spontaneous
  Country: US (occurrence: US)
  Receive Date: 20190521
  Receipt Date: 20190521
  Transmission Date: 20190711
  Serious: Yes (Other)
  Sender: FDA-Public Use
  Company Number: US-TEVA-2019-US-1050956

PATIENT
  Age: 60 Year
  Sex: Female
  Weight: 70 kg

DRUGS (6)
  1. VITAMIN D [Concomitant]
     Active Substance: VITAMIN D NOS
     Indication: VITAMIN SUPPLEMENTATION
     Route: 065
  2. COPAXONE [Suspect]
     Active Substance: GLATIRAMER ACETATE
     Route: 065
  3. NEURONTIN [Concomitant]
     Active Substance: GABAPENTIN
     Indication: PRODUCT USED FOR UNKNOWN INDICATION
     Route: 065
  4. COPAXONE [Suspect]
     Active Substance: GLATIRAMER ACETATE
     Indication: RELAPSING-REMITTING MULTIPLE SCLEROSIS
     Dosage: 20 MILLIGRAM DAILY;
     Route: 065
     Dates: start: 2001
  5. COPAXONE [Suspect]
     Active Substance: GLATIRAMER ACETATE
     Dosage: FIVE TO SIX YEARS AGO (2014, 2013)
     Route: 065
  6. COPAXONE [Suspect]
     Active Substance: GLATIRAMER ACETATE
     Dosage: 20 MILLIGRAM DAILY;
     Route: 065

REACTIONS (11)
  - Injection site atrophy [Not Recovered/Not Resolved]
  - Myalgia [Not Recovered/Not Resolved]
  - Multiple sclerosis relapse [Recovered/Resolved]
  - Adverse drug reaction [Recovered/Resolved]
  - Hypoaesthesia [Not Recovered/Not Resolved]
  - Musculoskeletal stiffness [Not Recovered/Not Resolved]
  - Swelling [Unknown]
  - Burning sensation [Not Recovered/Not Resolved]
  - Band sensation [Not Recovered/Not Resolved]
  - Lhermitte^s sign [Not Recovered/Not Resolved]
  - Urticaria [Unknown]

NARRATIVE: CASE EVENT DATE: 201905
